FAERS Safety Report 16430420 (Version 5)
Quarter: 2019Q3

REPORT INFORMATION
  Report Type: Spontaneous
  Country: PL (occurrence: PL)
  Receive Date: 20190614
  Receipt Date: 20190831
  Transmission Date: 20191004
  Serious: Yes (Hospitalization, Other)
  Sender: FDA-Public Use
  Company Number: PL-AUROBINDO-AUR-APL-2019-033208

PATIENT

DRUGS (8)
  1. OLANZAPINE. [Suspect]
     Active Substance: OLANZAPINE
     Indication: DEPRESSION
  2. D-PENICILLAMINE [Concomitant]
     Active Substance: PENICILLAMINE
     Indication: HEPATO-LENTICULAR DEGENERATION
     Dosage: UNKIN SLOWLY INCREASING DOSES
     Route: 065
  3. ZINC SULFATE. [Concomitant]
     Active Substance: ZINC SULFATE
     Indication: HEPATO-LENTICULAR DEGENERATION
     Dosage: 160 MILLIGRAM
     Route: 065
  4. OLANZAPINE. [Suspect]
     Active Substance: OLANZAPINE
     Indication: HEPATO-LENTICULAR DEGENERATION
     Dosage: 10 MILLIGRAM, ONCE A DAY
     Route: 065
  5. ARIPIPRAZOLE  TABLETS [Suspect]
     Active Substance: ARIPIPRAZOLE
     Indication: HEPATO-LENTICULAR DEGENERATION
     Dosage: 10 MILLIGRAM
     Route: 065
  6. ARIPIPRAZOLE  TABLETS [Suspect]
     Active Substance: ARIPIPRAZOLE
     Indication: ANXIETY
     Dosage: 20 MILLIGRAM, DAILY
     Route: 065
  7. ARIPIPRAZOLE  TABLETS [Suspect]
     Active Substance: ARIPIPRAZOLE
     Indication: DEPRESSION
     Dosage: 10 MILLIGRAM (THE DOSE OF ARIPIPRAZOLE WAS DECREASED TO 10 MG AND)
     Route: 065
  8. OLANZAPINE. [Suspect]
     Active Substance: OLANZAPINE
     Indication: ANXIETY

REACTIONS (6)
  - Postural tremor [Recovered/Resolved]
  - Neurological decompensation [Recovered/Resolved]
  - Dysphonia [Recovered/Resolved]
  - Slow speech [Recovered/Resolved]
  - Speech disorder [Recovered/Resolved]
  - Tremor [Recovered/Resolved]
